FAERS Safety Report 6737618-7 (Version None)
Quarter: 2010Q2

REPORT INFORMATION
  Report Type: 
  Country: None (occurrence: None)
  Receive Date: 20100521
  Receipt Date: 20100521
  Transmission Date: 20101027
  Serious: Yes (Hospitalization, Other)
  Sender: FDA-Public Use
  Company Number: None

PATIENT
  Age: 58 Year
  Sex: Female
  Weight: 49.8957 kg

DRUGS (2)
  1. SEROQUEL [Suspect]
     Indication: BIPOLAR DISORDER
     Dosage: 1 TABLET AT BEDTIME PO
     Route: 048
     Dates: start: 20100121, end: 20100217
  2. CLONAZEPAM [Suspect]
     Indication: BIPOLAR DISORDER
     Dosage: 1 TABLRT AT BEDTIME PO
     Route: 048
     Dates: start: 20091030, end: 20100121

REACTIONS (2)
  - CEREBROVASCULAR ACCIDENT [None]
  - DYSKINESIA [None]
